FAERS Safety Report 7601421-6 (Version None)
Quarter: 2011Q3

REPORT INFORMATION
  Report Type: 
  Country: None (occurrence: None)
  Receive Date: 20110711
  Receipt Date: 20110701
  Transmission Date: 20111222
  Serious: Yes (Hospitalization, Disabling, Other)
  Sender: FDA-Public Use
  Company Number: US-MERCK-0805USA00681

PATIENT
  Age: 60 Year
  Sex: Female
  Weight: 68 kg

DRUGS (6)
  1. FOSAMAX [Suspect]
     Indication: OSTEOPENIA
     Route: 048
     Dates: start: 19990203, end: 20020801
  2. FOSAMAX [Suspect]
     Route: 048
     Dates: start: 20020812, end: 20060817
  3. [THERAPY UNSPECIFIED] [Concomitant]
     Indication: HYPERCHOLESTEROLAEMIA
     Route: 065
     Dates: start: 19940101
  4. FOSAMAX [Suspect]
     Route: 048
     Dates: start: 20020812, end: 20060817
  5. [THERAPY UNSPECIFIED] [Concomitant]
     Indication: HYPERTENSION
     Route: 065
     Dates: start: 19940101
  6. FOSAMAX [Suspect]
     Indication: OSTEOPOROSIS
     Route: 048
     Dates: start: 19990203, end: 20020801

REACTIONS (24)
  - NON-CARDIAC CHEST PAIN [None]
  - OTITIS MEDIA [None]
  - OSTEONECROSIS OF JAW [None]
  - HEPATIC ENZYME INCREASED [None]
  - ORAL CAVITY FISTULA [None]
  - CHRONIC SINUSITIS [None]
  - DEAFNESS [None]
  - NASAL SEPTUM DEVIATION [None]
  - FALL [None]
  - UPPER RESPIRATORY TRACT INFECTION [None]
  - OSTEOMYELITIS [None]
  - WEIGHT INCREASED [None]
  - TYPE 2 DIABETES MELLITUS [None]
  - OROANTRAL FISTULA [None]
  - OSTEONECROSIS [None]
  - JAW DISORDER [None]
  - DRUG HYPERSENSITIVITY [None]
  - PERIPHERAL VASCULAR DISORDER [None]
  - SPINAL OSTEOARTHRITIS [None]
  - FEMUR FRACTURE [None]
  - FLANK PAIN [None]
  - IMPAIRED HEALING [None]
  - DENTAL CARIES [None]
  - BRONCHITIS [None]
